FAERS Safety Report 19595562 (Version 2)
Quarter: 2021Q4

REPORT INFORMATION
  Report Type: Spontaneous
  Country: BR (occurrence: BR)
  Receive Date: 20210723
  Receipt Date: 20211022
  Transmission Date: 20220303
  Serious: Yes (Other)
  Sender: FDA-Public Use
  Company Number: BR-BRISTOL-MYERS SQUIBB COMPANY-BMS-2021-067997

PATIENT
  Age: 51 Year
  Sex: Male

DRUGS (2)
  1. NIVOLUMAB [Suspect]
     Active Substance: NIVOLUMAB
     Indication: Malignant melanoma
     Dosage: 1 MILLIGRAM/KILOGRAM
     Route: 065
     Dates: start: 202007
  2. IPILIMUMAB [Suspect]
     Active Substance: IPILIMUMAB
     Indication: Malignant melanoma
     Dosage: 3 MILLIGRAM/KILOGRAM
     Route: 065
     Dates: start: 202007

REACTIONS (4)
  - Myocarditis [Unknown]
  - Pericardial effusion [Unknown]
  - Immune-mediated hypophysitis [Unknown]
  - Thyroiditis [Unknown]

NARRATIVE: CASE EVENT DATE: 20200901
